FAERS Safety Report 8298115-3 (Version None)
Quarter: 2012Q2

REPORT INFORMATION
  Report Type: 
  Country: None (occurrence: None)
  Receive Date: 20120419
  Receipt Date: 20120412
  Transmission Date: 20120825
  Serious: Yes (Hospitalization)
  Sender: FDA-Public Use
  Company Number: AU-SHIRE-SPV1-2012-00376

PATIENT
  Sex: Male

DRUGS (1)
  1. FOSRENOL [Suspect]
     Indication: HAEMODIALYSIS
     Dosage: UNK, UNKNOWN
     Route: 065

REACTIONS (1)
  - COLITIS [None]
